FAERS Safety Report 20130377 (Version 1)
Quarter: 2021Q4

REPORT INFORMATION
  Report Type: Spontaneous
  Country: US (occurrence: US)
  Receive Date: 20211130
  Receipt Date: 20211130
  Transmission Date: 20220303
  Serious: No
  Sender: FDA-Public Use
  Company Number: US-GALDERMA-US2021018178

PATIENT

DRUGS (7)
  1. PROACTIV MD ADAPALENE ACNE TREATMENT [Suspect]
     Active Substance: ADAPALENE
     Indication: Product used for unknown indication
     Dosage: 1 DOSAGE FORM, BID
     Route: 061
     Dates: start: 202105, end: 202105
  2. PROACTIV MD ADAPALENE ACNE TREATMENT [Suspect]
     Active Substance: ADAPALENE
     Dosage: 1 DOSAGE FORM, QD
     Route: 061
     Dates: start: 202105, end: 202105
  3. PROACTIV MD ADAPALENE ACNE TREATMENT [Suspect]
     Active Substance: ADAPALENE
     Dosage: 1 DOSAGE FORM, ONE TIME
     Route: 061
     Dates: start: 202105, end: 202105
  4. Proactiv MD Ultra Hydrating Moisturizer [Concomitant]
     Indication: Product used for unknown indication
     Dosage: 1 DOSAGE FORM, ONE TIME
     Route: 061
     Dates: start: 202105, end: 202105
  5. Proactiv MD Ultra Gentle Cleanser [Concomitant]
     Indication: Product used for unknown indication
     Dosage: 1 DOSAGE FORM, ONE TIME
     Route: 061
     Dates: start: 202105, end: 202105
  6. PROACTIV ACNE BODY WASH [Concomitant]
     Active Substance: SALICYLIC ACID
     Indication: Product used for unknown indication
     Dosage: 1 DOSAGE FORM, ONE TIME
     Route: 061
     Dates: start: 202105, end: 202105
  7. Proactiv Pore Purifying Nose Strip [Concomitant]
     Indication: Product used for unknown indication
     Dosage: 1 DOSAGE FORM, ONE TIME
     Route: 061
     Dates: start: 202105, end: 202105

REACTIONS (7)
  - Swelling face [Recovering/Resolving]
  - Erythema [Recovering/Resolving]
  - Dermatitis [Recovering/Resolving]
  - Skin exfoliation [Recovering/Resolving]
  - Skin burning sensation [Recovering/Resolving]
  - Overdose [Recovered/Resolved]
  - Inappropriate schedule of product administration [Recovered/Resolved]

NARRATIVE: CASE EVENT DATE: 20210501
